FAERS Safety Report 10034695 (Version 1)
Quarter: 2014Q1

REPORT INFORMATION
  Report Type: Spontaneous
  Country: US (occurrence: None)
  Receive Date: 20140306
  Receipt Date: 20140306
  Transmission Date: 20141002
  Serious: Yes (Hospitalization, Other)
  Sender: FDA-Public Use
  Company Number: 163-21880-12122775

PATIENT
  Age: 64 Year
  Sex: Male

DRUGS (8)
  1. REVLIMID (LENALIDOMIDE) (25 MILLIGRAM, CAPSULES) [Suspect]
     Indication: PLASMA CELL MYELOMA
     Dosage: 1 IN 1 D
     Route: 048
     Dates: start: 201006
  2. VELCADE (BORTEZOMIB) [Concomitant]
  3. CYCLOPHOSPHAMIDE [Concomitant]
  4. DEXAMETHASONE [Concomitant]
  5. ANTIBIOTICS [Concomitant]
  6. RED BLOOD CELL TRANSFUSION (BLOOD TRANSFUSION, AUXILIARY PRODUCTS) [Concomitant]
  7. BABY ASPIRIN (ACETYLSALICYLIC ACID) [Concomitant]
  8. VALTREX (VALACICLOVIR HYDROCHLORIDE) [Concomitant]

REACTIONS (6)
  - Clostridium difficile infection [None]
  - Renal impairment [None]
  - Platelet count decreased [None]
  - Cholecystitis [None]
  - Nasopharyngitis [None]
  - Light chain analysis increased [None]
